FAERS Safety Report 9699546 (Version 1)
Quarter: 2013Q4

REPORT INFORMATION
  Report Type: Spontaneous
  Country: US (occurrence: US)
  Receive Date: 20131120
  Receipt Date: 20131120
  Transmission Date: 20140711
  Serious: Yes (Other)
  Sender: FDA-Public Use
  Company Number: US-FRI-1000051506

PATIENT
  Age: 13 Year
  Sex: Female
  Weight: 54 kg

DRUGS (6)
  1. CELEXA [Suspect]
     Indication: ANXIETY
     Dosage: 20 MG
     Dates: start: 201305, end: 2013
  2. CELEXA [Suspect]
     Indication: NEURALGIA
     Dosage: 30 MG
     Dates: start: 2013, end: 2013
  3. CELEXA [Suspect]
     Indication: ANXIETY
     Dosage: 10 MG
     Dates: start: 2013, end: 2013
  4. CELEXA [Suspect]
     Indication: NEURALGIA
  5. LYRICA [Suspect]
     Indication: NEURALGIA
     Dosage: 25 MG IN AM, 50 MG MIDDAY, 25 MG IN PM
     Dates: start: 201305, end: 2013
  6. LYRICA [Suspect]
     Indication: NEURALGIA
     Dosage: 50 MG
     Dates: start: 2013, end: 201309

REACTIONS (5)
  - Suicidal ideation [Recovered/Resolved]
  - Hostility [Recovered/Resolved]
  - Adverse event [Recovered/Resolved]
  - Off label use [Recovered/Resolved]
  - Drug metabolising enzyme test abnormal [Unknown]
